FAERS Safety Report 23658431 (Version 1)
Quarter: 2024Q1

REPORT INFORMATION
  Report Type: Spontaneous
  Country: ES (occurrence: ES)
  Receive Date: 20240321
  Receipt Date: 20240321
  Transmission Date: 20240410
  Serious: Yes (Other)
  Sender: FDA-Public Use
  Company Number: None

PATIENT
  Age: 42 Year
  Sex: Female

DRUGS (1)
  1. DIAZEPAM [Suspect]
     Active Substance: DIAZEPAM
     Indication: Headache
     Dosage: DIAZEPAM 5 MG 30 TABLETS
     Dates: start: 20240212, end: 20240214

REACTIONS (2)
  - Lip oedema [Unknown]
  - Dysarthria [Unknown]

NARRATIVE: CASE EVENT DATE: 20240214
